FAERS Safety Report 23123151 (Version 1)
Quarter: 2023Q4

REPORT INFORMATION
  Report Type: Spontaneous
  Country: US (occurrence: US)
  Receive Date: 20231030
  Receipt Date: 20231030
  Transmission Date: 20240110
  Serious: Yes (Other)
  Sender: FDA-Public Use
  Company Number: US-AMGEN-USASP2023190450

PATIENT

DRUGS (1)
  1. IVABRADINE [Suspect]
     Active Substance: IVABRADINE
     Indication: Junctional ectopic tachycardia
     Dosage: UNK
     Route: 065

REACTIONS (3)
  - Sinus bradycardia [Unknown]
  - Supraventricular extrasystoles [Unknown]
  - Drug ineffective [Unknown]
